FAERS Safety Report 4543842-4 (Version None)
Quarter: 2005Q1

REPORT INFORMATION
  Report Type: 
  Country: None (occurrence: None)
  Receive Date: 20050103
  Receipt Date: 20030606
  Transmission Date: 20050727
  Serious: Yes (Disabling, Other)
  Sender: FDA-Public Use
  Company Number: GXKR2003GB00486

PATIENT
  Sex: Male
  Weight: 0.8 kg

DRUGS (1)
  1. INDOMETHACIN [Suspect]
     Indication: PATENT DUCTUS ARTERIOSUS
     Dosage: 140 A, AUG, ORAL
     Route: 048
     Dates: start: 20030511

REACTIONS (6)
  - BLOOD CREATININE INCREASED [None]
  - ELECTROCARDIOGRAM ABNORMAL [None]
  - HYPERKALAEMIA [None]
  - HYPONATRAEMIA [None]
  - NEONATAL DISORDER [None]
  - URINE FLOW DECREASED [None]
